FAERS Safety Report 16461452 (Version 1)
Quarter: 2019Q2

REPORT INFORMATION
  Report Type: Spontaneous
  Country: FR (occurrence: FR)
  Receive Date: 20190621
  Receipt Date: 20190621
  Transmission Date: 20190711
  Serious: Yes (Hospitalization)
  Sender: FDA-Public Use
  Company Number: FR-SUN PHARMACEUTICAL INDUSTRIES LTD-2019RR-211100

PATIENT
  Age: 79 Year
  Sex: Male
  Weight: 77 kg

DRUGS (10)
  1. ATARAX [Concomitant]
     Active Substance: HYDROXYZINE HYDROCHLORIDE
     Indication: PRODUCT USED FOR UNKNOWN INDICATION
     Dosage: 1 OU 2 COMPRIME(S) LE SOIR ()
     Route: 048
  2. PREVISCAN 20 MG, COMPRIME SECABLE [Concomitant]
     Active Substance: FLUINDIONE
     Indication: ATRIAL FIBRILLATION
     Dosage: 0.5 DOSAGE FORM, DAILY
     Route: 048
  3. INIPOMP [Concomitant]
     Active Substance: PANTOPRAZOLE SODIUM
     Indication: PRODUCT USED FOR UNKNOWN INDICATION
     Dosage: 20 MILLIGRAM, DAILY
     Route: 048
  4. TAHOR [Concomitant]
     Active Substance: ATORVASTATIN CALCIUM
     Indication: PRODUCT USED FOR UNKNOWN INDICATION
     Dosage: 40 MILLIGRAM, DAILY
     Route: 048
  5. ZYLORIC 100 MG, COMPRIME [Concomitant]
     Active Substance: ALLOPURINOL
     Indication: PRODUCT USED FOR UNKNOWN INDICATION
     Dosage: ()
     Route: 048
  6. CETIRIZINE (DICHLORHYDRATE DE) [Concomitant]
     Active Substance: CETIRIZINE HYDROCHLORIDE
     Indication: PRODUCT USED FOR UNKNOWN INDICATION
     Dosage: 0.5 DOSAGE FORM, DAILY
     Route: 048
  7. LASILIX [Concomitant]
     Active Substance: FUROSEMIDE
     Indication: PRODUCT USED FOR UNKNOWN INDICATION
     Dosage: 20 MILLIGRAM, DAILY
     Route: 048
  8. DIFFU K [Concomitant]
     Active Substance: POTASSIUM CHLORIDE
     Indication: PRODUCT USED FOR UNKNOWN INDICATION
     Dosage: 3 DOSAGE FORM, DAILY
     Route: 048
  9. VALACICLOVIR [Suspect]
     Active Substance: VALACYCLOVIR HYDROCHLORIDE
     Indication: HERPES ZOSTER
     Dosage: 3 GRAM, DAILY
     Route: 048
     Dates: start: 20190508, end: 20190515
  10. MECIR L.P. 0,4 MG, COMPRIME PELLICULE A LIBERATION PROLONGEE [Concomitant]
     Indication: PRODUCT USED FOR UNKNOWN INDICATION
     Dosage: 1 DOSAGE FORM, DAILY
     Route: 048

REACTIONS (5)
  - Confusional state [Recovered/Resolved]
  - Disorientation [Recovered/Resolved]
  - Dementia [Recovered/Resolved]
  - Memory impairment [Recovered/Resolved]
  - Product prescribing error [Recovered/Resolved]

NARRATIVE: CASE EVENT DATE: 20190508
